FAERS Safety Report 8983425 (Version 3)
Quarter: 2013Q1

REPORT INFORMATION
  Report Type: Spontaneous
  Country: US (occurrence: US)
  Receive Date: 20121224
  Receipt Date: 20130128
  Transmission Date: 20140127
  Serious: Yes (Hospitalization)
  Sender: FDA-Public Use
  Company Number: US-BIOGENIDEC-2012BI061368

PATIENT
  Age: 66 Year
  Sex: Female

DRUGS (1)
  1. TYSABRI [Suspect]
     Indication: MULTIPLE SCLEROSIS
     Route: 042
     Dates: start: 20070605

REACTIONS (6)
  - Hip fracture [Unknown]
  - Patella fracture [Unknown]
  - Ankle fracture [Unknown]
  - Feeling abnormal [Unknown]
  - Mobility decreased [Unknown]
  - Fall [Not Recovered/Not Resolved]
